FAERS Safety Report 8535146-X (Version None)
Quarter: 2012Q3

REPORT INFORMATION
  Report Type: 
  Country: None (occurrence: None)
  Receive Date: 20120724
  Receipt Date: 20120719
  Transmission Date: 20120928
  Serious: Yes (Other)
  Sender: FDA-Public Use
  Company Number: GB-PFIZER INC-2012174700

PATIENT
  Age: 71 Year
  Sex: Male

DRUGS (5)
  1. RAMIPRIL [Concomitant]
  2. LANSOPRAZOLE [Concomitant]
  3. WARFARIN SODIUM [Concomitant]
  4. EPLERENONE [Suspect]
     Indication: FLUID RETENTION
  5. DIGOXIN [Concomitant]

REACTIONS (2)
  - CEREBROVASCULAR ACCIDENT [None]
  - ARTERIAL THROMBOSIS [None]
